FAERS Safety Report 13474180 (Version 2)
Quarter: 2017Q2

REPORT INFORMATION
  Report Type: Spontaneous
  Country: US (occurrence: US)
  Receive Date: 20170424
  Receipt Date: 20170613
  Transmission Date: 20170830
  Serious: Yes (Death, Hospitalization, Other)
  Sender: FDA-Public Use
  Company Number: US-INCYTE CORPORATION-2017IN003030

PATIENT

DRUGS (1)
  1. JAKAFI [Suspect]
     Active Substance: RUXOLITINIB
     Indication: HISTIOCYTOSIS HAEMATOPHAGIC
     Dosage: 10 MG, BID
     Route: 048
     Dates: start: 20170415

REACTIONS (12)
  - Histiocytosis haematophagic [Fatal]
  - Blood triglycerides increased [Not Recovered/Not Resolved]
  - Serum ferritin decreased [Not Recovered/Not Resolved]
  - Terminal state [Not Recovered/Not Resolved]
  - Pyrexia [Not Recovered/Not Resolved]
  - Off label use [Not Recovered/Not Resolved]
  - Liver function test increased [Not Recovered/Not Resolved]
  - Pneumonia [Not Recovered/Not Resolved]
  - Pancytopenia [Not Recovered/Not Resolved]
  - Blood lactate dehydrogenase increased [Not Recovered/Not Resolved]
  - Diffuse large B-cell lymphoma [Fatal]
  - Infection [Fatal]

NARRATIVE: CASE EVENT DATE: 20170414
